FAERS Safety Report 20821817 (Version 2)
Quarter: 2022Q3

REPORT INFORMATION
  Report Type: Spontaneous
  Country: GB (occurrence: GB)
  Receive Date: 20220512
  Receipt Date: 20220704
  Transmission Date: 20221027
  Serious: Yes (Other)
  Sender: FDA-Public Use
  Company Number: GB-002147023-NVSC2022GB099588

PATIENT
  Age: 43 Year
  Sex: Female

DRUGS (18)
  1. INFLIXIMAB [Suspect]
     Active Substance: INFLIXIMAB
     Dosage: 8 DF, WEEKLY
     Dates: start: 2014
  2. INFLIXIMAB [Suspect]
     Active Substance: INFLIXIMAB
     Dosage: 6 DF, WEEKLY
     Dates: start: 2014
  3. METHOTREXATE SODIUM [Suspect]
     Active Substance: METHOTREXATE SODIUM
     Dosage: UNK
     Route: 058
  4. METHOTREXATE SODIUM [Suspect]
     Active Substance: METHOTREXATE SODIUM
     Dosage: UNK
     Route: 058
     Dates: start: 2017
  5. AZATHIOPRINE [Suspect]
     Active Substance: AZATHIOPRINE
     Dosage: UNK
  6. CERTOLIZUMAB [Suspect]
     Active Substance: CERTOLIZUMAB
     Dosage: UNK
     Route: 065
     Dates: start: 2018
  7. CYCLOSPORINE [Suspect]
     Active Substance: CYCLOSPORINE
     Dosage: UNK
     Dates: start: 2017
  8. GOLIMUMAB [Suspect]
     Active Substance: GOLIMUMAB
     Dosage: UNK
     Route: 065
     Dates: start: 201304
  9. IXEKIZUMAB [Suspect]
     Active Substance: IXEKIZUMAB
     Dosage: UNK
     Route: 065
  10. HYRIMOZ [Suspect]
     Active Substance: ADALIMUMAB-ADAZ
     Indication: Ankylosing spondylitis
     Dosage: UNK
     Route: 065
     Dates: start: 201203
  11. COSENTYX [Suspect]
     Active Substance: SECUKINUMAB
     Dosage: UNK
     Dates: start: 2016
  12. COSENTYX [Suspect]
     Active Substance: SECUKINUMAB
     Dosage: UNK
     Route: 065
     Dates: start: 2017
  13. APREMILAST [Concomitant]
     Active Substance: APREMILAST
     Dosage: UNK
     Route: 065
  14. APREMILAST [Concomitant]
     Active Substance: APREMILAST
     Dosage: UNK
     Route: 065
  15. ANTHRALIN [Concomitant]
     Active Substance: ANTHRALIN
     Dosage: UNK
     Route: 065
  16. DOVONEX [Concomitant]
     Active Substance: CALCIPOTRIENE
     Dosage: UNK (HIGH DOSE)
     Route: 065
  17. PREDNISOLONE [Concomitant]
     Active Substance: PREDNISOLONE
     Dosage: 10 MG
     Route: 048
     Dates: start: 2017
  18. PREDNISOLONE [Concomitant]
     Active Substance: PREDNISOLONE
     Dosage: 5 MG, QD
     Route: 048

REACTIONS (15)
  - C-reactive protein increased [Unknown]
  - Cough [Unknown]
  - Therapy non-responder [Unknown]
  - Osteoarthritis [Unknown]
  - Headache [Unknown]
  - Infection [Unknown]
  - Arthropathy [Unknown]
  - Skin disorder [Unknown]
  - Nausea [Unknown]
  - Double stranded DNA antibody [Unknown]
  - Uveitis [Unknown]
  - Visual impairment [Unknown]
  - Sinusitis [Unknown]
  - Psoriasis [Unknown]
  - Therapeutic response decreased [Unknown]

NARRATIVE: CASE EVENT DATE: 20190101
